FAERS Safety Report 7815420-2 (Version None)
Quarter: 2011Q4

REPORT INFORMATION
  Report Type: 
  Country: None (occurrence: None)
  Receive Date: 20111014
  Receipt Date: 20111004
  Transmission Date: 20120403
  Serious: Yes (Hospitalization)
  Sender: FDA-Public Use
  Company Number: PHHY2011US66726

PATIENT
  Sex: Female

DRUGS (1)
  1. EXJADE [Suspect]
     Indication: SICKLE CELL ANAEMIA
     Dosage: 750 MG, DAILY
     Route: 048
     Dates: start: 20110301

REACTIONS (5)
  - ASTHENIA [None]
  - PAIN IN EXTREMITY [None]
  - VOMITING [None]
  - CHEST PAIN [None]
  - MALAISE [None]
